FAERS Safety Report 23243052 (Version 1)
Quarter: 2023Q4

REPORT INFORMATION
  Report Type: Other
  Country: CA (occurrence: CA)
  Receive Date: 20231130
  Receipt Date: 20231130
  Transmission Date: 20240110
  Serious: Yes (Other)
  Sender: FDA-Public Use
  Company Number: CA-APOTEX-2023AP016855

PATIENT
  Age: 52 Year
  Sex: Male
  Weight: 140 kg

DRUGS (43)
  1. BACLOFEN [Suspect]
     Active Substance: BACLOFEN
     Indication: Product used for unknown indication
     Dosage: 10 MILLIGRAM, QD
     Route: 048
  2. BACLOFEN [Suspect]
     Active Substance: BACLOFEN
     Dosage: 10 MILLIGRAM, TID
     Route: 048
  3. BACLOFEN [Suspect]
     Active Substance: BACLOFEN
     Dosage: 30 MILLIGRAM, TID
     Route: 065
  4. BISOPROLOL [Suspect]
     Active Substance: BISOPROLOL\BISOPROLOL FUMARATE
     Indication: Secondary progressive multiple sclerosis
     Dosage: UNK
     Route: 048
  5. DOXEPIN [Suspect]
     Active Substance: DOXEPIN
     Indication: Product used for unknown indication
     Dosage: 6 MILLIGRAM
     Route: 065
  6. DOXEPIN [Suspect]
     Active Substance: DOXEPIN
     Dosage: 6 MILLIGRAM, QD
     Route: 065
  7. GABAPENTIN [Suspect]
     Active Substance: GABAPENTIN
     Indication: Product used for unknown indication
     Dosage: 10 MILLIGRAM
     Route: 065
  8. GABAPENTIN [Suspect]
     Active Substance: GABAPENTIN
     Dosage: 100 MILLIGRAM, QD
     Route: 065
  9. LORAZEPAM [Suspect]
     Active Substance: LORAZEPAM
     Indication: Product used for unknown indication
     Dosage: UNK
     Route: 048
  10. PRAMIPEXOLE [Suspect]
     Active Substance: PRAMIPEXOLE
     Indication: Secondary progressive multiple sclerosis
     Dosage: 0.25 MILLIGRAM
     Route: 048
  11. PRAMIPEXOLE [Suspect]
     Active Substance: PRAMIPEXOLE
     Dosage: 0.25 MILLIGRAM, QD
     Route: 048
  12. RABEPRAZOLE [Suspect]
     Active Substance: RABEPRAZOLE
     Indication: Secondary progressive multiple sclerosis
     Dosage: 20 MILLIGRAM
     Route: 048
  13. RABEPRAZOLE [Suspect]
     Active Substance: RABEPRAZOLE
     Dosage: 20 MILLIGRAM, QD
     Route: 048
  14. ROSUVASTATIN [Suspect]
     Active Substance: ROSUVASTATIN
     Indication: Product used for unknown indication
     Dosage: 5 MILLIGRAM
     Route: 048
  15. ROSUVASTATIN [Suspect]
     Active Substance: ROSUVASTATIN
     Dosage: 5 MILLIGRAM, QD
     Route: 048
  16. TAMSULOSIN [Suspect]
     Active Substance: TAMSULOSIN
     Indication: Secondary progressive multiple sclerosis
     Dosage: UNK
     Route: 065
  17. AMLODIPINE BESYLATE\CANDESARTAN CILEXETIL [Suspect]
     Active Substance: AMLODIPINE BESYLATE\CANDESARTAN CILEXETIL
     Indication: Secondary progressive multiple sclerosis
     Dosage: 10 MILLIGRAM, QD
     Route: 048
  18. AMLODIPINE BESYLATE\CANDESARTAN CILEXETIL [Suspect]
     Active Substance: AMLODIPINE BESYLATE\CANDESARTAN CILEXETIL
     Dosage: 10 MILLIGRAM
     Route: 048
  19. REBIF [Suspect]
     Active Substance: INTERFERON BETA-1A
     Indication: Product used for unknown indication
     Dosage: UNK
     Route: 058
  20. TECFIDERA [Suspect]
     Active Substance: DIMETHYL FUMARATE
     Indication: Product used for unknown indication
     Dosage: UNK
     Route: 065
  21. ASPIRIN [Concomitant]
     Active Substance: ASPIRIN
     Indication: Product used for unknown indication
     Dosage: UNK
     Route: 065
  22. ACETYLSALICYLIC ACID;CODEINE [Concomitant]
     Indication: Product used for unknown indication
     Dosage: 81 MILLIGRAM, QD
     Route: 065
  23. ACETYLSALICYLIC ACID;CODEINE [Concomitant]
     Dosage: 80 MILLIGRAM
     Route: 065
  24. ALLOPURINOL [Concomitant]
     Active Substance: ALLOPURINOL
     Indication: Product used for unknown indication
     Dosage: 100 MILLIGRAM
     Route: 048
  25. ALLOPURINOL;BENZBROMARONE [Concomitant]
     Indication: Product used for unknown indication
     Dosage: 100 MILLIGRAM
     Route: 048
  26. ALLOPURINOL;BENZBROMARONE [Concomitant]
     Dosage: 100 MILLIGRAM, QD
     Route: 048
  27. AMINOBENZOIC ACID [Concomitant]
     Active Substance: AMINOBENZOIC ACID
     Indication: Product used for unknown indication
     Dosage: UNK
     Route: 065
  28. ATIVAN [Concomitant]
     Active Substance: LORAZEPAM
     Indication: Product used for unknown indication
     Dosage: 0.5 MILLIGRAM, QD
     Route: 065
  29. ATIVAN [Concomitant]
     Active Substance: LORAZEPAM
     Dosage: 0.5 MILLIGRAM
     Route: 065
  30. BIOTIN [Concomitant]
     Active Substance: BIOTIN
     Indication: Product used for unknown indication
     Dosage: UNK
     Route: 065
  31. CALCIUM [Concomitant]
     Active Substance: CALCIUM
     Indication: Product used for unknown indication
     Dosage: UNK
     Route: 065
  32. CALCIUM PANTOTHENATE [Concomitant]
     Active Substance: CALCIUM PANTOTHENATE
     Indication: Product used for unknown indication
     Dosage: UNK
     Route: 065
  33. CHOLINE BITARTRATE [Concomitant]
     Active Substance: CHOLINE BITARTRATE
     Indication: Product used for unknown indication
     Dosage: UNK
     Route: 065
  34. CYANOCOBALAMIN [Concomitant]
     Active Substance: CYANOCOBALAMIN
     Indication: Product used for unknown indication
     Dosage: UNK
     Route: 065
  35. DALFAMPRIDINE [Concomitant]
     Active Substance: DALFAMPRIDINE
     Indication: Product used for unknown indication
     Dosage: 10 MILLIGRAM
     Route: 065
  36. DALFAMPRIDINE [Concomitant]
     Active Substance: DALFAMPRIDINE
     Dosage: 10 MILLIGRAM, QD
     Route: 065
  37. FOLIC ACID [Concomitant]
     Active Substance: FOLIC ACID
     Indication: Product used for unknown indication
     Dosage: UNK
     Route: 065
  38. INOSITOL [Concomitant]
     Active Substance: INOSITOL
     Indication: Product used for unknown indication
     Dosage: UNK
     Route: 065
  39. NICOTINAMIDE [Concomitant]
     Active Substance: NIACINAMIDE
     Indication: Product used for unknown indication
     Dosage: UNK
     Route: 065
  40. PYRIDOXINE HYDROCHLORIDE [Concomitant]
     Active Substance: PYRIDOXINE HYDROCHLORIDE
     Indication: Product used for unknown indication
     Dosage: UNK
     Route: 065
  41. RIBOFLAVIN [Concomitant]
     Active Substance: RIBOFLAVIN
     Indication: Product used for unknown indication
     Dosage: UNK
     Route: 065
  42. THIAMINE MONONITRATE [Concomitant]
     Active Substance: THIAMINE MONONITRATE
     Indication: Product used for unknown indication
     Dosage: UNK
     Route: 065
  43. VITAMIN D3 [Concomitant]
     Active Substance: CHOLECALCIFEROL
     Indication: Product used for unknown indication
     Dosage: UNK
     Route: 065

REACTIONS (24)
  - Relapsing-remitting multiple sclerosis [Unknown]
  - Anxiety [Unknown]
  - Balance disorder [Unknown]
  - Central nervous system lesion [Unknown]
  - Fall [Unknown]
  - Gait spastic [Unknown]
  - Hypertonic bladder [Unknown]
  - Hypoaesthesia [Unknown]
  - Memory impairment [Unknown]
  - Micturition urgency [Unknown]
  - Monoparesis [Unknown]
  - Movement disorder [Unknown]
  - Multiple sclerosis relapse [Unknown]
  - Muscle spasticity [Unknown]
  - Needle fatigue [Unknown]
  - Nocturia [Unknown]
  - Pain [Unknown]
  - Pollakiuria [Unknown]
  - Ataxia [Unknown]
  - Bradycardia [Unknown]
  - Dizziness [Unknown]
  - Insomnia [Unknown]
  - Erectile dysfunction [Unknown]
  - Dysarthria [Unknown]
